FAERS Safety Report 6783217-0 (Version None)
Quarter: 2010Q2

REPORT INFORMATION
  Report Type: 
  Country: None (occurrence: None)
  Receive Date: 20100622
  Receipt Date: 20100614
  Transmission Date: 20101027
  Serious: Yes (Hospitalization)
  Sender: FDA-Public Use
  Company Number: DE-JNJFOC-20100605220

PATIENT
  Age: 46 Year
  Sex: Female
  Weight: 57 kg

DRUGS (10)
  1. RISPERDAL [Suspect]
     Indication: DRUG USE FOR UNKNOWN INDICATION
     Route: 048
     Dates: start: 20100115, end: 20100206
  2. RISPERDAL [Suspect]
     Route: 048
     Dates: start: 20100115, end: 20100206
  3. RISPERDAL [Suspect]
     Route: 048
     Dates: start: 20100115, end: 20100206
  4. RISPERDAL [Suspect]
     Route: 048
     Dates: start: 20100115, end: 20100206
  5. ZYPREXA [Suspect]
     Indication: DRUG USE FOR UNKNOWN INDICATION
     Route: 048
     Dates: start: 20091230, end: 20100126
  6. ZYPREXA [Suspect]
     Route: 048
     Dates: start: 20091230, end: 20100126
  7. ZYPREXA [Suspect]
     Route: 048
     Dates: start: 20091230, end: 20100126
  8. ZYPREXA [Suspect]
     Route: 048
     Dates: start: 20091230, end: 20100126
  9. ZYPREXA [Suspect]
     Route: 048
     Dates: start: 20091230, end: 20100126
  10. LORAZEPAM [Concomitant]
     Route: 048
     Dates: start: 20091230

REACTIONS (3)
  - BLOOD PROLACTIN INCREASED [None]
  - BREAST PAIN [None]
  - HIRSUTISM [None]
